FAERS Safety Report 23347489 (Version 1)
Quarter: 2023Q4

REPORT INFORMATION
  Report Type: Spontaneous
  Country: CN (occurrence: CN)
  Receive Date: 20231228
  Receipt Date: 20231228
  Transmission Date: 20240110
  Serious: Yes (Hospitalization, Other)
  Sender: FDA-Public Use
  Company Number: CN-009507513-2312CHN009853

PATIENT
  Age: 60 Year
  Sex: Female
  Weight: 74 kg

DRUGS (6)
  1. KEYTRUDA [Suspect]
     Active Substance: PEMBROLIZUMAB
     Indication: Endometrial cancer
     Dosage: 200 MG, ONCE
     Route: 041
     Dates: start: 20231124, end: 20231124
  2. PACLITAXEL [Suspect]
     Active Substance: PACLITAXEL
     Indication: Endometrial cancer
     Dosage: 400 MG, ONCE
     Route: 041
     Dates: start: 20231124, end: 20231124
  3. CARBOPLATIN [Suspect]
     Active Substance: CARBOPLATIN
     Indication: Endometrial cancer
     Dosage: 0.4 G (ALSO REPORTED AS 500 MG), ONCE
     Route: 041
     Dates: start: 20231124, end: 20231124
  4. SODIUM CHLORIDE [Concomitant]
     Active Substance: SODIUM CHLORIDE
     Indication: Medication dilution
     Dosage: 100 ML, ONCE
     Route: 041
     Dates: start: 20231124, end: 20231124
  5. SODIUM CHLORIDE [Concomitant]
     Active Substance: SODIUM CHLORIDE
     Dosage: 100 ML, ONCE
     Route: 041
     Dates: start: 20231124, end: 20231124
  6. DEXTROSE [Concomitant]
     Active Substance: DEXTROSE\DEXTROSE MONOHYDRATE
     Indication: Medication dilution
     Dosage: 250ML
     Route: 041
     Dates: start: 20231124, end: 20231124

REACTIONS (4)
  - Neuropathy peripheral [Recovering/Resolving]
  - Hospitalisation [Unknown]
  - Hypoaesthesia [Recovering/Resolving]
  - Product use issue [Unknown]

NARRATIVE: CASE EVENT DATE: 20230101
